FAERS Safety Report 7960155-9 (Version None)
Quarter: 2011Q4

REPORT INFORMATION
  Report Type: 
  Country: None (occurrence: None)
  Receive Date: 20111206
  Receipt Date: 20111130
  Transmission Date: 20120403
  Serious: Yes (Death, Hospitalization)
  Sender: FDA-Public Use
  Company Number: PHHY2011TR105579

PATIENT
  Age: 8 Year
  Sex: Female

DRUGS (1)
  1. EXJADE [Suspect]
     Indication: THALASSAEMIA BETA
     Dates: start: 20090101, end: 20111101

REACTIONS (3)
  - NAUSEA [None]
  - DEATH [None]
  - VOMITING [None]
